FAERS Safety Report 8773519 (Version 1)
Quarter: 2012Q4

REPORT INFORMATION
  Report Type: 
  Country: US (occurrence: US)
  Receive Date: 20120907
  Receipt Date: 20120907
  Transmission Date: 20130627
  Serious: Yes (Other)
  Sender: FDA-Public Use
  Company Number: US-GLAXOSMITHKLINE-A0992403A

PATIENT
  Age: 0 Year
  Sex: Female
  Weight: 2.2 kg

DRUGS (1)
  1. PAXIL CR [Suspect]
     Route: 064

REACTIONS (3)
  - Asthma [Unknown]
  - Failure to thrive [Unknown]
  - Foetal exposure during pregnancy [Unknown]
